FAERS Safety Report 24426288 (Version 1)
Quarter: 2024Q4

REPORT INFORMATION
  Report Type: Other
  Country: MY (occurrence: MY)
  Receive Date: 20241011
  Receipt Date: 20241011
  Transmission Date: 20250115
  Serious: Yes (Hospitalization)
  Sender: BIONPHARMA
  Company Number: MY-Bion-014027

PATIENT
  Age: 68 Year
  Sex: Male

DRUGS (1)
  1. DICLOFENAC POTASSIUM [Suspect]
     Active Substance: DICLOFENAC POTASSIUM
     Indication: Renal colic
     Route: 030

REACTIONS (1)
  - Cyanosis [Unknown]
